FAERS Safety Report 7659927-X (Version None)
Quarter: 2011Q3

REPORT INFORMATION
  Report Type: 
  Country: None (occurrence: None)
  Receive Date: 20110802
  Receipt Date: 20110728
  Transmission Date: 20111222
  Serious: Yes (Life-Threatening, Hospitalization)
  Sender: FDA-Public Use
  Company Number: 2011SP001304

PATIENT
  Age: 60 Year
  Sex: Female
  Weight: 55 kg

DRUGS (12)
  1. ROHYPNOL (FLUNITRAZEPAM) [Suspect]
     Indication: SLEEP DISORDER
     Dosage: 1; 20 MG, QD, ONCE, PO
     Route: 048
     Dates: start: 20101215, end: 20110106
  2. ROHYPNOL (FLUNITRAZEPAM) [Suspect]
     Indication: SLEEP DISORDER
     Dosage: 1; 20 MG, QD, ONCE, PO
     Route: 048
     Dates: start: 20110107, end: 20110107
  3. MICOMBI (TELMISARTAN/HYDROCHLOROTHIAZIDE) [Concomitant]
  4. PLAVIX [Concomitant]
  5. REMERON [Suspect]
     Indication: DEPRESSION
     Dosage: 15; 750 MG, QD, ONCE, PO
     Route: 048
     Dates: start: 20110107, end: 20110107
  6. REMERON [Suspect]
     Indication: DEPRESSION
     Dosage: 15; 750 MG, QD, ONCE, PO
     Route: 048
     Dates: start: 20101012, end: 20110106
  7. LENDORM [Suspect]
     Indication: SLEEP DISORDER
     Dosage: 0.25 MG, QD, OPO
     Route: 048
     Dates: start: 20101020, end: 20101214
  8. NORVASC [Concomitant]
  9. ALOSENN (SENNOSIDE A, B) [Concomitant]
  10. MICOMBI (TELMISARTAN/HYDROCHLOROTHIAZIDE) [Concomitant]
  11. RASILEZ (ALISKIREN FUMARATE) [Concomitant]
  12. TENORMIN [Concomitant]

REACTIONS (7)
  - BLOOD PRESSURE DECREASED [None]
  - SLEEP DISORDER [None]
  - INCORRECT DOSE ADMINISTERED [None]
  - BRONCHITIS [None]
  - PNEUMONIA [None]
  - COMA [None]
  - SUICIDE ATTEMPT [None]
